FAERS Safety Report 9912643 (Version 3)
Quarter: 2014Q1

REPORT INFORMATION
  Report Type: Report from Study
  Country: DE (occurrence: DE)
  Receive Date: 20140220
  Receipt Date: 20140225
  Transmission Date: 20141002
  Serious: Yes (Hospitalization)
  Sender: FDA-Public Use
  Company Number: DE-ROCHE-1330831

PATIENT
  Age: 47 Year
  Sex: Female
  Weight: 63 kg

DRUGS (6)
  1. BEVACIZUMAB [Suspect]
     Indication: COLORECTAL CANCER METASTATIC
     Dosage: ON 27/DEC/2013, WAS THE MOST RECENT ADMINISTRATION OF BEVACIZUMAB PRIOR TO SAE AT DOSE 7.5 MG/KG (40
     Route: 042
     Dates: start: 20121218
  2. CAPECITABINE [Suspect]
     Indication: COLORECTAL CANCER METASTATIC
     Dosage: ON 03/JAN/2014, WAS THE MOST RECENT ADMINISTRATION OF CAPECITABINE PRIOR TO SAE
     Route: 048
     Dates: start: 20130802, end: 20140104
  3. OXALIPLATIN [Suspect]
     Indication: COLORECTAL CANCER METASTATIC
     Dosage: ON 18/JUN/2013, WAS THE MOST RECENT ADMINISTRATION OF OXALIPLATIN 75% OF 85 MG/M2 (105MG) PRIOR TO S
     Route: 042
     Dates: start: 20121218
  4. FLUOROURACIL [Suspect]
     Indication: COLORECTAL CANCER METASTATIC
     Dosage: ON 18/JUN/2013, WAS THE MOST RECENT ADMINISTRATION OF 5-FLUOROURACIL 75% OF 3200 MG/M2 (4000MG)
     Route: 065
     Dates: start: 20121218
  5. IRINOTECAN [Suspect]
     Indication: COLORECTAL CANCER METASTATIC
     Dosage: ON 18/JUN/2013, WAS THE MOST RECENT ADMINISTRATION OF IRINOTECAN165 MG/M2 (204MG) PRIOR TO SAE
     Route: 042
     Dates: start: 20121218
  6. FOLINIC ACID [Suspect]
     Indication: COLORECTAL CANCER METASTATIC
     Dosage: ON 18/JUN/2013, WAS THE MOST RECENT ADMINISTRATION OF LEUCOVORIN 75% OF 200 MG/M2 (250 MG) PRIOR TO
     Route: 042
     Dates: start: 20121218

REACTIONS (2)
  - Febrile infection [Recovering/Resolving]
  - Colitis [Not Recovered/Not Resolved]
